FAERS Safety Report 16285522 (Version 1)
Quarter: 2019Q2

REPORT INFORMATION
  Report Type: Spontaneous
  Country: CN (occurrence: CN)
  Receive Date: 20190508
  Receipt Date: 20190508
  Transmission Date: 20190711
  Serious: Yes (Other)
  Sender: FDA-Public Use
  Company Number: CN-UCBSA-2019018564

PATIENT
  Age: 17 Year
  Sex: Female
  Weight: 60 kg

DRUGS (2)
  1. KEPPRA [Suspect]
     Active Substance: LEVETIRACETAM
     Indication: EPILEPSY
     Dosage: 0.5 GRAM, 2X/DAY (BID)
     Route: 045
     Dates: start: 20180904, end: 20180911
  2. RISPERIDONE. [Concomitant]
     Active Substance: RISPERIDONE
     Indication: MANIA
     Dosage: 1 MILLIGRAM, ONCE DAILY (QD)
     Route: 045
     Dates: start: 20180903, end: 20180911

REACTIONS (1)
  - Leukopenia [Recovered/Resolved]

NARRATIVE: CASE EVENT DATE: 20180911
